FAERS Safety Report 22374554 (Version 1)
Quarter: 2023Q2

REPORT INFORMATION
  Report Type: Spontaneous
  Country: GB (occurrence: GB)
  Receive Date: 20230526
  Receipt Date: 20230526
  Transmission Date: 20230721
  Serious: Yes (Life-Threatening, Disabling, Other)
  Sender: FDA-Public Use
  Company Number: GB-MHRA-MED-202305161643159400-JZQPL

PATIENT
  Age: 68 Year
  Sex: Female

DRUGS (2)
  1. ATORVASTATIN [Suspect]
     Active Substance: ATORVASTATIN
     Indication: Adverse drug reaction
     Dosage: 20 MILLIGRAM DAILY;
     Route: 065
     Dates: start: 20230503, end: 20230505
  2. ATORVASTATIN [Suspect]
     Active Substance: ATORVASTATIN
     Indication: Rheumatoid arthritis

REACTIONS (6)
  - Chromaturia [Recovering/Resolving]
  - Pyrexia [Recovered/Resolved]
  - Paralysis [Recovered/Resolved]
  - Rhabdomyolysis [Recovered/Resolved]
  - Vomiting [Recovered/Resolved]
  - Medication error [Unknown]

NARRATIVE: CASE EVENT DATE: 20230504
